FAERS Safety Report 15463412 (Version 2)
Quarter: 2018Q4

REPORT INFORMATION
  Report Type: Report from Study
  Country: US (occurrence: US)
  Receive Date: 20181004
  Receipt Date: 20181206
  Transmission Date: 20190204
  Serious: Yes (Hospitalization, Other)
  Sender: FDA-Public Use
  Company Number: US-BIOGEN-2018BI00635410

PATIENT
  Sex: Female

DRUGS (1)
  1. PLEGRIDY [Suspect]
     Active Substance: PEGINTERFERON BETA-1A
     Indication: MULTIPLE SCLEROSIS
     Route: 058
     Dates: start: 20150805

REACTIONS (6)
  - Sepsis [Unknown]
  - Pancreatic neuroendocrine tumour [Unknown]
  - Dementia [Unknown]
  - Gait inability [Unknown]
  - Hip fracture [Unknown]
  - Drug ineffective [Unknown]
